FAERS Safety Report 8008076-X (Version None)
Quarter: 2011Q4

REPORT INFORMATION
  Report Type: 
  Country: None (occurrence: None)
  Receive Date: 20111227
  Receipt Date: 20111221
  Transmission Date: 20120403
  Serious: Yes (Life-Threatening, Hospitalization)
  Sender: FDA-Public Use
  Company Number: PHHY2011FR111118

PATIENT
  Sex: Female

DRUGS (7)
  1. AMIODARONE HCL [Concomitant]
     Indication: ATRIAL FIBRILLATION
     Dosage: 0.5 DF, 3  TIMES PER WEEK
     Route: 048
  2. CLOZAPINE [Suspect]
     Indication: PSYCHOTIC DISORDER
     Dosage: 0.5 DF, AT 7:00 PM
     Dates: start: 20111202
  3. EQUANIL [Suspect]
     Dosage: 400MG TABLET, 0.5 DF
     Route: 048
     Dates: start: 20111203
  4. LAMICTAL [Concomitant]
     Indication: EPILEPSY
     Dosage: 25MG TABLET, 1 DF DAILY
     Route: 048
     Dates: start: 20110101
  5. LEVOTHYROXINE SODIUM [Concomitant]
     Indication: HYPOTHYROIDISM
     Dosage: 25 ?G TABLET, 1.5 DF DAILY
     Route: 048
  6. EQUANIL [Suspect]
     Indication: AGGRESSION
     Dosage: 400MG/5ML (MEPROBAMATE) A SINGLE INTRAMUSCULAR INJECTION OF 50MG
     Route: 030
  7. VALDOXAN [Concomitant]
     Indication: DEPRESSION
     Dosage: 25MG TABLET, 1 DF DAILY
     Route: 048
     Dates: start: 20110101

REACTIONS (12)
  - MUSCLE SPASTICITY [None]
  - ABNORMAL BEHAVIOUR [None]
  - C-REACTIVE PROTEIN INCREASED [None]
  - ANXIETY [None]
  - COMA SCALE ABNORMAL [None]
  - EXTRAPYRAMIDAL DISORDER [None]
  - HYPOTHERMIA [None]
  - DISTURBANCE IN ATTENTION [None]
  - NEGATIVISM [None]
  - COMA [None]
  - LUNG DISORDER [None]
  - MUTISM [None]
